FAERS Safety Report 10364766 (Version 1)
Quarter: 2014Q3

REPORT INFORMATION
  Report Type: Spontaneous
  Country: US (occurrence: US)
  Receive Date: 20140806
  Receipt Date: 20140806
  Transmission Date: 20150326
  Serious: No
  Sender: FDA-Public Use
  Company Number: US-009507513-1408USA000629

PATIENT
  Age: 19 Year
  Sex: Female
  Weight: 57.6 kg

DRUGS (1)
  1. IMPLANON [Suspect]
     Active Substance: ETONOGESTREL
     Indication: CONTRACEPTION
     Dosage: DOSE/ FREQUENCY: 1 ROD/ 3 YEARS
     Route: 059
     Dates: start: 201402

REACTIONS (4)
  - Adverse event [Unknown]
  - Thrombosis [Unknown]
  - Menorrhagia [Unknown]
  - Back pain [Unknown]

NARRATIVE: CASE EVENT DATE: 201402
